FAERS Safety Report 17836102 (Version 3)
Quarter: 2021Q3

REPORT INFORMATION
  Report Type: Spontaneous
  Country: US (occurrence: US)
  Receive Date: 20200528
  Receipt Date: 20210922
  Transmission Date: 20211014
  Serious: Yes (Other)
  Sender: FDA-Public Use
  Company Number: US-PFIZER INC-2020208258

PATIENT
  Age: 57 Year
  Sex: Female
  Weight: 104 kg

DRUGS (3)
  1. NATURE MADE VITAMIN C [Concomitant]
     Dosage: UNK
  2. IBRANCE [Suspect]
     Active Substance: PALBOCICLIB
     Indication: BREAST CANCER FEMALE
     Dosage: 100 MG, CYCLIC  (TAKES IT FOR 21 DAYS ON AND 7 DAYS OFF)
     Dates: start: 202004
  3. PROBIOTICS [Concomitant]
     Active Substance: PROBIOTICS NOS
     Dosage: UNK

REACTIONS (5)
  - Visual impairment [Unknown]
  - COVID-19 [Unknown]
  - Constipation [Not Recovered/Not Resolved]
  - Pneumonia [Not Recovered/Not Resolved]
  - Psychiatric symptom [Unknown]

NARRATIVE: CASE EVENT DATE: 202005
